FAERS Safety Report 8772581 (Version 2)
Quarter: 2013Q3

REPORT INFORMATION
  Report Type: Spontaneous
  Country: US (occurrence: US)
  Receive Date: 20120905
  Receipt Date: 20130830
  Transmission Date: 20140515
  Serious: Yes (Hospitalization)
  Sender: FDA-Public Use
  Company Number: US-BAYER-2012-090840

PATIENT
  Age: 41 Year
  Sex: Female
  Weight: 95.24 kg

DRUGS (2)
  1. YAZ [Suspect]
     Indication: MENORRHAGIA
  2. DOXYCYCLINE [Concomitant]
     Dosage: UNK UNK, BID
     Route: 048

REACTIONS (1)
  - Pulmonary embolism [None]
